FAERS Safety Report 6423739-5 (Version None)
Quarter: 2009Q4

REPORT INFORMATION
  Report Type: 
  Country: None (occurrence: None)
  Receive Date: 20091028
  Receipt Date: 20091015
  Transmission Date: 20100525
  Serious: Yes (Hospitalization)
  Sender: FDA-Public Use
  Company Number: 2009US003521

PATIENT
  Age: 62 Year
  Sex: Male
  Weight: 111.1 kg

DRUGS (5)
  1. AMEVIVE [Suspect]
     Indication: PSORIASIS
     Dosage: 15 MG, WEEKLY, INTRAMUSCULAR, 15 MG, WEEKLY, INTRAMUSCULAR
     Route: 030
     Dates: start: 20050324, end: 20050608
  2. AMEVIVE [Suspect]
     Indication: PSORIASIS
     Dosage: 15 MG, WEEKLY, INTRAMUSCULAR, 15 MG, WEEKLY, INTRAMUSCULAR
     Route: 030
     Dates: start: 20050914, end: 20051201
  3. PERINDOPRIL ERBUMINE [Concomitant]
  4. ASPIRIN [Concomitant]
  5. CRESTOR [Concomitant]

REACTIONS (3)
  - AORTIC VALVE SCLEROSIS [None]
  - LEFT ATRIAL DILATATION [None]
  - MITRAL VALVE REPLACEMENT [None]
